FAERS Safety Report 15321552 (Version 2)
Quarter: 2018Q4

REPORT INFORMATION
  Report Type: Spontaneous
  Country: NL (occurrence: NL)
  Receive Date: 20180827
  Receipt Date: 20181005
  Transmission Date: 20190204
  Serious: Yes (Death)
  Sender: FDA-Public Use
  Company Number: NL-TEVA-2018-NL-947620

PATIENT
  Age: 64 Year
  Sex: Male

DRUGS (1)
  1. SILDENAFIL TABLET, 50 MG (MILLIGRAM) [Suspect]
     Active Substance: SILDENAFIL
     Indication: ERECTILE DYSFUNCTION
     Dosage: 1D1T ZN
     Route: 065
     Dates: start: 20150801

REACTIONS (1)
  - Sudden cardiac death [Fatal]

NARRATIVE: CASE EVENT DATE: 20180716
